FAERS Safety Report 5340140-6 (Version None)
Quarter: 2007Q2

REPORT INFORMATION
  Report Type: 
  Country: None (occurrence: None)
  Receive Date: 20070523
  Receipt Date: 20070514
  Transmission Date: 20071010
  Serious: Yes (Other)
  Sender: FDA-Public Use
  Company Number: B0471476A

PATIENT
  Age: 47 Year
  Sex: Male

DRUGS (2)
  1. BUPROPION HYDROCHLORIDE [Suspect]
     Dosage: 150 MG/THREE TIMES PER DAY/ORAL
     Route: 048
  2. DULOXETINE [Concomitant]

REACTIONS (11)
  - ABDOMINAL PAIN UPPER [None]
  - ADVERSE DRUG REACTION [None]
  - DEPRESSED MOOD [None]
  - DYSPHAGIA [None]
  - DYSTONIA [None]
  - NEGATIVE THOUGHTS [None]
  - THERAPEUTIC RESPONSE DECREASED [None]
  - THROAT TIGHTNESS [None]
  - TONGUE SPASM [None]
  - TORTICOLLIS [None]
  - TRISMUS [None]
